FAERS Safety Report 23974321 (Version 1)
Quarter: 2024Q2

REPORT INFORMATION
  Report Type: Report from Study
  Country: CZ (occurrence: CZ)
  Receive Date: 20240614
  Receipt Date: 20240614
  Transmission Date: 20240716
  Serious: Yes (Other)
  Sender: FDA-Public Use
  Company Number: CZ-BAYER-2024A074219

PATIENT
  Sex: Female
  Weight: 74 kg

DRUGS (1)
  1. LEVONORGESTREL [Suspect]
     Active Substance: LEVONORGESTREL
     Indication: Product used for unknown indication
     Dosage: TIME INTERVAL: AS NECESSARY: UNK
     Route: 015

REACTIONS (3)
  - Pregnancy with contraceptive device [Unknown]
  - Drug ineffective [Unknown]
  - Maternal exposure during pregnancy [Unknown]
